FAERS Safety Report 9580523 (Version 1)
Quarter: 2013Q3

REPORT INFORMATION
  Report Type: Spontaneous
  Country: FR (occurrence: None)
  Receive Date: 20130916
  Receipt Date: 20130916
  Transmission Date: 20140515
  Serious: Yes (Other)
  Sender: FDA-Public Use
  Company Number: JPI-P-026781

PATIENT
  Age: 47 Year
  Sex: Male

DRUGS (1)
  1. XYREM [Suspect]
     Indication: HYPERSOMNIA
     Route: 048
     Dates: start: 201206, end: 201208

REACTIONS (10)
  - Loss of consciousness [None]
  - Fall [None]
  - Drug administration error [None]
  - Amaurosis [None]
  - Tooth fracture [None]
  - Cataplexy [None]
  - Asthenia [None]
  - Dizziness [None]
  - Tremor [None]
  - Incoherent [None]
